FAERS Safety Report 16283365 (Version 2)
Quarter: 2021Q3

REPORT INFORMATION
  Report Type: Spontaneous
  Country: AU (occurrence: AU)
  Receive Date: 20190507
  Receipt Date: 20210714
  Transmission Date: 20211014
  Serious: Yes (Other)
  Sender: FDA-Public Use
  Company Number: AU-ELI_LILLY_AND_COMPANY-AU201905000292

PATIENT
  Sex: Male

DRUGS (9)
  1. LANTUS [Suspect]
     Active Substance: INSULIN GLARGINE
     Indication: PRODUCT USED FOR UNKNOWN INDICATION
     Dosage: 18 U, EACH EVENING
     Route: 065
     Dates: start: 201904
  2. HUMALOG [Suspect]
     Active Substance: INSULIN LISPRO
     Dosage: 7?10 U, DAILY (AT TEATIME)
     Route: 065
  3. MAGNESIUM [Concomitant]
     Active Substance: MAGNESIUM
     Indication: PRODUCT USED FOR UNKNOWN INDICATION
     Dosage: UNK
  4. HUMALOG [Suspect]
     Active Substance: INSULIN LISPRO
     Indication: TYPE 1 DIABETES MELLITUS
     Dosage: 5?6 U, EACH MORNING
     Route: 065
     Dates: start: 1990
  5. HUMALOG [Suspect]
     Active Substance: INSULIN LISPRO
     Dosage: 7 U, EACH EVENING
     Route: 065
  6. HUMALOG [Suspect]
     Active Substance: INSULIN LISPRO
     Dosage: 3 U, EACH MORNING
     Route: 065
  7. HUMALOG [Suspect]
     Active Substance: INSULIN LISPRO
     Dosage: 6 U, DAILY (AT NOON)
     Route: 065
  8. HUMALOG [Suspect]
     Active Substance: INSULIN LISPRO
     Dosage: 6 U AT LUNCH
     Route: 065
  9. VITAMIN D NOS [Concomitant]
     Active Substance: VITAMIN D NOS
     Indication: PRODUCT USED FOR UNKNOWN INDICATION
     Dosage: UNK

REACTIONS (5)
  - Wrong product administered [Unknown]
  - Blood glucose increased [Unknown]
  - Incorrect dose administered [Unknown]
  - Hypoglycaemia [Unknown]
  - Atrial fibrillation [Unknown]

NARRATIVE: CASE EVENT DATE: 2016
